FAERS Safety Report 14416359 (Version 1)
Quarter: 2018Q1

REPORT INFORMATION
  Report Type: Spontaneous
  Country: US (occurrence: US)
  Receive Date: 20180122
  Receipt Date: 20180122
  Transmission Date: 20180509
  Serious: No
  Sender: FDA-Public Use
  Company Number: US-ENDO PHARMACEUTICALS INC-2017-003626

PATIENT
  Sex: Female
  Weight: 79.82 kg

DRUGS (12)
  1. TOPIRAMATE. [Concomitant]
     Active Substance: TOPIRAMATE
     Indication: HEADACHE
  2. OPANA ER [Suspect]
     Active Substance: OXYMORPHONE HYDROCHLORIDE
     Indication: PAIN
     Dosage: 80 MG, BID
     Route: 065
     Dates: start: 200703
  3. ALPRAZOLAM TABLETS 1 MG [Concomitant]
     Active Substance: ALPRAZOLAM
     Indication: SLEEP DISORDER
  4. PANTOPRAZOLE [Concomitant]
     Active Substance: PANTOPRAZOLE
     Indication: BACTERIAL INFECTION
  5. HYDROCODONE BITARTRATE AND ACETAMINOPHEN [Concomitant]
     Active Substance: ACETAMINOPHEN\HYDROCODONE BITARTRATE
     Indication: BREAKTHROUGH PAIN
  6. ZOLPIDEM TARTRATE TABLETS 10MG [Concomitant]
     Active Substance: ZOLPIDEM TARTRATE
  7. DIAZEPAM TABLETS [Concomitant]
     Active Substance: DIAZEPAM
     Indication: SLEEP DISORDER
  8. XIFAXAN [Concomitant]
     Active Substance: RIFAXIMIN
     Indication: BACTERIAL INFECTION
  9. LIDOCAINE. [Concomitant]
     Active Substance: LIDOCAINE
     Indication: PAIN
  10. OPANA ER [Suspect]
     Active Substance: OXYMORPHONE HYDROCHLORIDE
     Dosage: UNK, UNKNOWN
     Route: 065
  11. LIDODERM [Concomitant]
     Active Substance: LIDOCAINE
     Indication: PAIN
  12. CYMBALTA [Concomitant]
     Active Substance: DULOXETINE HYDROCHLORIDE

REACTIONS (4)
  - Candida infection [Recovered/Resolved]
  - Drug ineffective [Unknown]
  - Pharyngitis streptococcal [Unknown]
  - Drug effect decreased [Unknown]

NARRATIVE: CASE EVENT DATE: 2016
